FAERS Safety Report 4342013-4 (Version None)
Quarter: 2004Q2

REPORT INFORMATION
  Report Type: 
  Country: None (occurrence: None)
  Receive Date: 20040415
  Receipt Date: 20040331
  Transmission Date: 20050107
  Serious: Yes (Death, Hospitalization)
  Sender: FDA-Public Use
  Company Number: US97074885A

PATIENT
  Age: 48 Year
  Sex: Male

DRUGS (1)
  1. GEMZAR [Suspect]
     Indication: LARGE CELL CARCINOMA OF THE RESPIRATORY TRACT STAGE UNSPECIFIED
     Dosage: 1250 MG/M2/ 3 MONTH

REACTIONS (18)
  - ABNORMAL CHEST SOUND [None]
  - ACUTE RESPIRATORY DISTRESS SYNDROME [None]
  - ACUTE RESPIRATORY FAILURE [None]
  - BODY TEMPERATURE INCREASED [None]
  - CRACKLES LUNG [None]
  - CYANOSIS CENTRAL [None]
  - DYSPNOEA [None]
  - GENERAL PHYSICAL HEALTH DETERIORATION [None]
  - HAEMOGLOBIN DECREASED [None]
  - HYPERHIDROSIS [None]
  - METASTASES TO CENTRAL NERVOUS SYSTEM [None]
  - NEUTROPHIL COUNT INCREASED [None]
  - OXYGEN SATURATION DECREASED [None]
  - PO2 DECREASED [None]
  - PRODUCTIVE COUGH [None]
  - PULMONARY OEDEMA [None]
  - PULMONARY TOXICITY [None]
  - TACHYPNOEA [None]
